FAERS Safety Report 11993727 (Version 2)
Quarter: 2016Q1

REPORT INFORMATION
  Report Type: Spontaneous
  Country: US (occurrence: US)
  Receive Date: 20160203
  Receipt Date: 20160229
  Transmission Date: 20160526
  Serious: No
  Sender: FDA-Public Use
  Company Number: US-PFIZER INC-2016036329

PATIENT
  Age: 61 Year
  Sex: Male
  Weight: 83.91 kg

DRUGS (1)
  1. ALPRAZOLAM. [Suspect]
     Active Substance: ALPRAZOLAM
     Dosage: 1 MG, UNK

REACTIONS (6)
  - Drug ineffective [Unknown]
  - Suspected counterfeit product [Unknown]
  - Product solubility abnormal [Unknown]
  - Prescription drug used without a prescription [Unknown]
  - Product taste abnormal [Unknown]
  - Poor quality drug administered [Unknown]
